FAERS Safety Report 8198322-4 (Version None)
Quarter: 2012Q1

REPORT INFORMATION
  Report Type: 
  Country: None (occurrence: None)
  Receive Date: 20120309
  Receipt Date: 20120228
  Transmission Date: 20120608
  Serious: Yes (Other)
  Sender: FDA-Public Use
  Company Number: PHHY2010JP84135

PATIENT
  Sex: Male

DRUGS (6)
  1. CLOZARIL [Suspect]
     Dosage: 200 MG,
     Route: 048
     Dates: end: 20101206
  2. MAGNESIUM OXIDE [Concomitant]
     Indication: SCHIZOPHRENIA
     Dosage: 2000 MG, UNK
     Route: 048
     Dates: start: 20101103, end: 20110203
  3. TRIAZOLAM [Concomitant]
     Indication: SCHIZOPHRENIA
     Dosage: 0.25 MG, UNK
     Route: 048
     Dates: start: 20101216, end: 20110203
  4. FLUNITRAZEPAM [Concomitant]
     Indication: SCHIZOPHRENIA
     Dosage: 1 MG, UNK
     Route: 048
     Dates: start: 20101103
  5. FLUNITRAZEPAM [Concomitant]
     Dosage: 2 MG, UNK
     Route: 048
     Dates: end: 20110203
  6. CLOZARIL [Suspect]
     Indication: SCHIZOPHRENIA
     Dosage: 300 MG, UNK
     Route: 048
     Dates: start: 20101103

REACTIONS (9)
  - ATONIC SEIZURES [None]
  - FALL [None]
  - ASTHENIA [None]
  - MYOCLONUS [None]
  - ALTERED STATE OF CONSCIOUSNESS [None]
  - DIZZINESS [None]
  - GAIT DISTURBANCE [None]
  - ELECTROENCEPHALOGRAM ABNORMAL [None]
  - DYSKINESIA [None]
